FAERS Safety Report 5963417-X (Version None)
Quarter: 2008Q4

REPORT INFORMATION
  Report Type: 
  Country: None (occurrence: None)
  Receive Date: 20081120
  Receipt Date: 20081110
  Transmission Date: 20090506
  Serious: Yes (Hospitalization)
  Sender: FDA-Public Use
  Company Number: 231724K08USA

PATIENT
  Age: 61 Year
  Sex: Male

DRUGS (5)
  1. REBIF [Suspect]
     Indication: MULTIPLE SCLEROSIS
     Dosage: 44 MCG, 3 IN 1 WEEKS, SUBCUTANEOUS
     Route: 058
     Dates: start: 20030505
  2. PLAVIX [Concomitant]
  3. VYTORIN [Concomitant]
  4. TOPROL-XL [Concomitant]
  5. ZANAFLEX [Concomitant]

REACTIONS (3)
  - CYSTITIS [None]
  - URINARY INCONTINENCE [None]
  - URINARY RETENTION [None]
